FAERS Safety Report 7832415-3 (Version None)
Quarter: 2011Q4

REPORT INFORMATION
  Report Type: 
  Country: None (occurrence: None)
  Receive Date: 20111022
  Receipt Date: 20111006
  Transmission Date: 20120403
  Serious: Yes (Hospitalization, Other)
  Sender: FDA-Public Use
  Company Number: US-BAYER-2011-035044

PATIENT
  Age: 22 Year
  Sex: Female
  Weight: 58.957 kg

DRUGS (7)
  1. TYLENOL COLD [Concomitant]
     Indication: NASOPHARYNGITIS
     Dosage: UNK
     Route: 048
     Dates: start: 20090501
  2. PRILOSEC [Concomitant]
     Indication: GASTROOESOPHAGEAL REFLUX DISEASE
     Dosage: 20 MG, QD
     Route: 048
  3. ALBUTEROL [Concomitant]
     Indication: ASTHMA
     Dosage: UNK UNK, PRN
  4. MORPHINE [Concomitant]
     Indication: PAIN
     Dosage: UNK
     Route: 042
     Dates: start: 20090501
  5. YAZ [Suspect]
     Indication: ORAL CONTRACEPTION
     Dosage: UNK
     Route: 048
     Dates: start: 20080601, end: 20090601
  6. EXCEDRIN (MIGRAINE) [Concomitant]
     Indication: HEADACHE
     Dosage: UNK
     Route: 048
     Dates: start: 20090501
  7. FLOVENT [Concomitant]
     Indication: ASTHMA
     Dosage: UNK UNK, BID

REACTIONS (8)
  - SKIN DISCOLOURATION [None]
  - DEPRESSION [None]
  - FEAR [None]
  - ANXIETY [None]
  - VARICOSE VEIN [None]
  - OEDEMA PERIPHERAL [None]
  - DEEP VEIN THROMBOSIS [None]
  - PAIN IN EXTREMITY [None]
